FAERS Safety Report 8182856-2 (Version None)
Quarter: 2012Q1

REPORT INFORMATION
  Report Type: 
  Country: None (occurrence: None)
  Receive Date: 20120126
  Receipt Date: 20111014
  Transmission Date: 20120608
  Serious: Yes (Other)
  Sender: FDA-Public Use
  Company Number: PHEH2011US06942

PATIENT
  Age: 49 Year
  Sex: Female

DRUGS (2)
  1. AFINITOR [Suspect]
     Indication: PANCREATIC NEUROENDOCRINE TUMOUR
     Dosage: 10 MG, QD, ORAL, 5 MG, QD, ORAL, 5 MG, PRN
     Route: 048
     Dates: start: 20110401
  2. SANDOSTATIN LAR [Concomitant]

REACTIONS (8)
  - NEOPLASM PROGRESSION [None]
  - FAILURE TO THRIVE [None]
  - BLOOD CHROMOGRANIN A INCREASED [None]
  - NAUSEA [None]
  - NEOPLASM MALIGNANT [None]
  - PNEUMONITIS [None]
  - VOMITING [None]
  - PNEUMONIA [None]
